FAERS Safety Report 5306163-8 (Version None)
Quarter: 2007Q2

REPORT INFORMATION
  Report Type: 
  Country: None (occurrence: None)
  Receive Date: 20070417
  Receipt Date: 20070402
  Transmission Date: 20071010
  Serious: Yes (Other)
  Sender: FDA-Public Use
  Company Number: AZAUK200600025

PATIENT
  Age: 69 Year
  Sex: Male
  Weight: 91.3 kg

DRUGS (5)
  1. AZACITIDINE (AZACITIDINE) (INJECTION) [Suspect]
     Indication: MYELODYSPLASTIC SYNDROME
     Dosage: 38 MG/M2 (DAILY X 7 DAYS), SUBCUTANEOUS
     Route: 058
     Dates: start: 20050629, end: 20050705
  2. NIFEDIPINE LONG ACTING (NIFEDIPINE) [Concomitant]
  3. BENDROFLUAZIDE (BENDROFLUMETHIAZIDE) [Concomitant]
  4. ATORVASTATIN CALCIUM [Concomitant]
  5. LISINOPRIL [Concomitant]

REACTIONS (3)
  - ANAEMIA HAEMOLYTIC AUTOIMMUNE [None]
  - ANOREXIA [None]
  - FATIGUE [None]
